FAERS Safety Report 10196102 (Version 2)
Quarter: 2014Q2

REPORT INFORMATION
  Report Type: Spontaneous
  Country: DE (occurrence: None)
  Receive Date: 20140521
  Receipt Date: 20140529
  Transmission Date: 20141212
  Serious: Yes (Other)
  Sender: FDA-Public Use
  Company Number: AUR-APL-2014-05902

PATIENT
  Age: 30 Year
  Sex: Female

DRUGS (3)
  1. MIRTAZAPINE [Suspect]
     Indication: DEPRESSION
     Dosage: 1 MG (1 MG, 1 IN 1 D), ORAL
     Route: 048
  2. CITALOPRAM [Suspect]
     Indication: DEPRESSION
     Dosage: 20 MG (20 MG, 1 IN 1 D), ORAL
     Route: 048
     Dates: start: 20121212, end: 20130421
  3. FOLSAEURE (FOLIC ACID) [Concomitant]

REACTIONS (2)
  - Abortion spontaneous [None]
  - Exposure during pregnancy [None]
